FAERS Safety Report 10580616 (Version 1)
Quarter: 2014Q4

REPORT INFORMATION
  Report Type: Other
  Country: GB (occurrence: GB)
  Receive Date: 20141113
  Receipt Date: 20141113
  Transmission Date: 20150529
  Serious: Yes (Disabling, Other)
  Sender: FDA-Public Use
  Company Number: GB-LUPIN PHARMACEUTICALS INC.-E2B_00002690

PATIENT
  Age: 63 Year
  Sex: Male

DRUGS (1)
  1. SIMVASTATIN. [Suspect]
     Active Substance: SIMVASTATIN
     Indication: BLOOD CHOLESTEROL INCREASED
     Route: 048

REACTIONS (8)
  - Myalgia [Recovered/Resolved]
  - Activities of daily living impaired [Recovered/Resolved]
  - Social avoidant behaviour [Recovered/Resolved]
  - Fatigue [Recovered/Resolved]
  - Discomfort [Recovered/Resolved]
  - Quality of life decreased [Recovered/Resolved]
  - Balance disorder [Recovered/Resolved]
  - Muscular weakness [Recovered/Resolved]
